FAERS Safety Report 5704529-5 (Version None)
Quarter: 2008Q2

REPORT INFORMATION
  Report Type: 
  Country: None (occurrence: None)
  Receive Date: 20080414
  Receipt Date: 20080407
  Transmission Date: 20081010
  Serious: Yes (Other)
  Sender: FDA-Public Use
  Company Number: BR-ROCHE-557739

PATIENT
  Age: 33 Year
  Sex: Male

DRUGS (2)
  1. RIVOTRIL [Suspect]
     Indication: ANXIOLYTIC THERAPY
     Route: 048
     Dates: start: 20040101
  2. APRAZ [Concomitant]
     Indication: ANXIETY
     Route: 048

REACTIONS (5)
  - CHEST PAIN [None]
  - ERYTHEMA [None]
  - MITRAL VALVE PROLAPSE [None]
  - OCULAR HYPERAEMIA [None]
  - TACHYCARDIA [None]
